FAERS Safety Report 15402146 (Version 1)
Quarter: 2018Q3

REPORT INFORMATION
  Report Type: Spontaneous
  Country: US (occurrence: US)
  Receive Date: 20180915
  Receipt Date: 20180915
  Transmission Date: 20181010
  Serious: Yes (Disabling)
  Sender: FDA-Public Use
  Company Number: None

PATIENT
  Age: 52 Year
  Sex: Female
  Weight: 59.85 kg

DRUGS (1)
  1. SMZ?TMPDS TAB [Suspect]
     Active Substance: SULFAMETHOXAZOLE\TRIMETHOPRIM
     Indication: COUGH
     Dosage: ?          QUANTITY:1 TABLET(S);?
     Route: 048
     Dates: start: 20180731, end: 20180804

REACTIONS (19)
  - Skin tightness [None]
  - Balance disorder [None]
  - Dizziness [None]
  - Hypoaesthesia oral [None]
  - Tremor [None]
  - Dry eye [None]
  - Drug hypersensitivity [None]
  - Skin burning sensation [None]
  - Joint noise [None]
  - Feeling cold [None]
  - Joint swelling [None]
  - Dysgeusia [None]
  - Peripheral swelling [None]
  - Dry skin [None]
  - Hepatic enzyme increased [None]
  - Dehydration [None]
  - Decreased appetite [None]
  - Pyrexia [None]
  - Arthralgia [None]

NARRATIVE: CASE EVENT DATE: 20180731
